FAERS Safety Report 4885710-4 (Version None)
Quarter: 2006Q1

REPORT INFORMATION
  Report Type: 
  Country: None (occurrence: None)
  Receive Date: 20060120
  Receipt Date: 20040811
  Transmission Date: 20060701
  Serious: Yes (Hospitalization, Other)
  Sender: FDA-Public Use
  Company Number: US-JNJFOC-20060103138

PATIENT
  Age: 78 Year
  Sex: Male
  Weight: 84 kg

DRUGS (14)
  1. REOPRO [Suspect]
     Dosage: 12 HOUR INFUSION
     Route: 042
  2. REOPRO [Suspect]
     Indication: RENAL ARTERY STENOSIS
     Route: 042
  3. PLACEBO [Suspect]
     Route: 042
  4. PLACEBO [Suspect]
     Indication: RENAL ARTERY STENOSIS
     Route: 042
  5. PLAVIX [Concomitant]
  6. LIPITOR [Concomitant]
  7. HYDROCHLOROTHIAZIDE [Concomitant]
  8. LOPRESSOR [Concomitant]
  9. NORVASC [Concomitant]
  10. VASOTEC [Concomitant]
  11. SULAZINE [Concomitant]
  12. ALLOPURINOL [Concomitant]
  13. FOLIC ACID [Concomitant]
  14. ASPIRIN [Concomitant]

REACTIONS (4)
  - ARTERIAL STENOSIS [None]
  - GROIN PAIN [None]
  - INTERMITTENT CLAUDICATION [None]
  - SYNCOPE [None]
